FAERS Safety Report 18836509 (Version 1)
Quarter: 2021Q1

REPORT INFORMATION
  Report Type: Spontaneous
  Country: US (occurrence: US)
  Receive Date: 20210203
  Receipt Date: 20210203
  Transmission Date: 20210419
  Serious: No
  Sender: FDA-Public Use
  Company Number: US-ALLERGAN-2010396US

PATIENT
  Age: 69 Year
  Sex: Female

DRUGS (2)
  1. BOTOX [Suspect]
     Active Substance: ONABOTULINUMTOXINA
     Dosage: UNK, SINGLE
  2. BOTOX [Suspect]
     Active Substance: ONABOTULINUMTOXINA
     Indication: HEMIPLEGIC MIGRAINE
     Dosage: UNK, SINGLE
     Dates: start: 201911, end: 201911

REACTIONS (3)
  - Off label use [Unknown]
  - Pain [Unknown]
  - Drug effective for unapproved indication [Unknown]
